FAERS Safety Report 5341397-8 (Version None)
Quarter: 2007Q2

REPORT INFORMATION
  Report Type: 
  Country: None (occurrence: None)
  Receive Date: 20070404
  Receipt Date: 20061117
  Transmission Date: 20071010
  Serious: Yes (Other)
  Sender: FDA-Public Use
  Company Number: 2006123188

PATIENT
  Age: 59 Year
  Sex: Male
  Weight: 102.0593 kg

DRUGS (6)
  1. GEODON [Suspect]
     Indication: ANXIETY
     Dosage: (40 MG)
     Dates: start: 20020305, end: 20061028
  2. GEODON [Suspect]
     Indication: BIPOLAR DISORDER
     Dosage: (40 MG)
     Dates: start: 20020305, end: 20061028
  3. GEODON [Suspect]
     Indication: DEPRESSION
     Dosage: (40 MG)
     Dates: start: 20020305, end: 20061028
  4. GEODON [Suspect]
     Indication: OBSESSIVE-COMPULSIVE DISORDER
     Dosage: (40 MG)
     Dates: start: 20020305, end: 20061028
  5. EFFEXOR [Concomitant]
  6. XANAX [Concomitant]

REACTIONS (1)
  - TARDIVE DYSKINESIA [None]
